FAERS Safety Report 15700721 (Version 2)
Quarter: 2019Q1

REPORT INFORMATION
  Report Type: Spontaneous
  Country: US (occurrence: US)
  Receive Date: 20181207
  Receipt Date: 20190215
  Transmission Date: 20190417
  Serious: Yes (Other)
  Sender: FDA-Public Use
  Company Number: US-SA-2018SA331440

PATIENT
  Age: 36 Year
  Sex: Female
  Weight: 70.3 kg

DRUGS (18)
  1. TYLENOL [Concomitant]
     Active Substance: ACETAMINOPHEN
  2. BENADRYL [Concomitant]
     Active Substance: DIPHENHYDRAMINE HYDROCHLORIDE
  3. ATIVAN [Concomitant]
     Active Substance: LORAZEPAM
  4. TAXOTERE [Suspect]
     Active Substance: DOCETAXEL
     Indication: BREAST CANCER FEMALE
     Dosage: 132 MG, Q3W
     Route: 042
     Dates: start: 20110120, end: 20110120
  5. HERCEPTIN [Concomitant]
     Active Substance: TRASTUZUMAB
  6. XANAX [Concomitant]
     Active Substance: ALPRAZOLAM
  7. DECADRON [DEXAMETHASONE ACETATE] [Concomitant]
  8. EMEND [Concomitant]
     Active Substance: APREPITANT
  9. PARAPLATIN [Concomitant]
     Active Substance: CARBOPLATIN
  10. MILK OF MAGNESIA [Concomitant]
     Active Substance: MAGNESIUM HYDROXIDE
  11. GLUTAMINE [Concomitant]
     Active Substance: GLUTAMINE
  12. MAG OXIDE [Concomitant]
     Active Substance: MAGNESIUM OXIDE
  13. ALOXI [Concomitant]
     Active Substance: PALONOSETRON HYDROCHLORIDE
  14. DIFLUCAN [Concomitant]
     Active Substance: FLUCONAZOLE
  15. NEULASTA [Concomitant]
     Active Substance: PEGFILGRASTIM
  16. LIDOCAINE;PRILOCAINE [Concomitant]
  17. ONDANSETRON [Concomitant]
     Active Substance: ONDANSETRON
  18. TAXOTERE [Suspect]
     Active Substance: DOCETAXEL
     Dosage: 132 MG, Q3W
     Route: 042
     Dates: start: 20110512, end: 20110512

REACTIONS (2)
  - Psychological trauma [Unknown]
  - Alopecia [Recovering/Resolving]

NARRATIVE: CASE EVENT DATE: 201102
